FAERS Safety Report 9772647 (Version 3)
Quarter: 2014Q2

REPORT INFORMATION
  Report Type: Spontaneous
  Country: US (occurrence: US)
  Receive Date: 20131219
  Receipt Date: 20140402
  Transmission Date: 20141212
  Serious: No
  Sender: FDA-Public Use
  Company Number: US-009507513-1202USA00549

PATIENT
  Sex: Male

DRUGS (4)
  1. PROSCAR [Suspect]
     Indication: ALOPECIA
     Dosage: 5 MG, QD
     Route: 048
     Dates: start: 20091023, end: 20100305
  2. PROSCAR [Suspect]
     Dosage: CUT PILL INTO 4 PIECES, TAKE DAILY
     Route: 048
  3. FINASTERIDE [Suspect]
     Indication: ALOPECIA
     Dosage: 5 MG, QD
     Route: 048
     Dates: start: 20091023, end: 20100305
  4. PROPECIA [Suspect]
     Indication: ANDROGENETIC ALOPECIA
     Dosage: UNK
     Route: 048
     Dates: start: 2009, end: 2010

REACTIONS (10)
  - Intentional product misuse [Unknown]
  - Wrong technique in drug usage process [Unknown]
  - Cognitive disorder [Not Recovered/Not Resolved]
  - Sluggishness [Unknown]
  - Adverse event [Unknown]
  - Adverse drug reaction [Unknown]
  - Erectile dysfunction [Not Recovered/Not Resolved]
  - Loss of libido [Unknown]
  - Semen volume decreased [Unknown]
  - Sexual dysfunction [Not Recovered/Not Resolved]
